FAERS Safety Report 23982242 (Version 1)
Quarter: 2024Q2

REPORT INFORMATION
  Report Type: Spontaneous
  Country: CN (occurrence: CN)
  Receive Date: 20240617
  Receipt Date: 20240617
  Transmission Date: 20240715
  Serious: Yes (Life-Threatening, Hospitalization)
  Sender: FDA-Public Use
  Company Number: CN-BAYER-2024A085830

PATIENT
  Age: 80 Year
  Sex: Male
  Weight: 68 kg

DRUGS (1)
  1. ULTRAVIST [Suspect]
     Active Substance: IOPROMIDE
     Indication: Angiogram
     Dosage: 90 ML, ONCE, 4.0/3.0/3.5 ML/S
     Route: 042
     Dates: start: 20240606, end: 20240606

REACTIONS (5)
  - Cough [Recovering/Resolving]
  - Dyspnoea [Recovering/Resolving]
  - Heart rate increased [None]
  - Blood pressure increased [None]
  - Respiratory rate increased [None]

NARRATIVE: CASE EVENT DATE: 20240606
